FAERS Safety Report 14585525 (Version 1)
Quarter: 2018Q1

REPORT INFORMATION
  Report Type: Spontaneous
  Country: US (occurrence: US)
  Receive Date: 20180301
  Receipt Date: 20180301
  Transmission Date: 20180509
  Serious: No
  Sender: FDA-Public Use
  Company Number: US-PFIZER INC-2018080497

PATIENT
  Sex: Male

DRUGS (1)
  1. XANAX [Suspect]
     Active Substance: ALPRAZOLAM
     Dosage: 1-2 MG, DAILY DEPENDING ON HOW IS THE DAY

REACTIONS (2)
  - Incorrect drug administration duration [Unknown]
  - Withdrawal syndrome [Unknown]
